FAERS Safety Report 6095744-2 (Version None)
Quarter: 2009Q1

REPORT INFORMATION
  Report Type: 
  Country: None (occurrence: None)
  Receive Date: 20090227
  Receipt Date: 20080625
  Transmission Date: 20090719
  Serious: No
  Sender: FDA-Public Use
  Company Number: A0731757A

PATIENT
  Age: 54 Year
  Sex: Female
  Weight: 71.8 kg

DRUGS (4)
  1. LAMICTAL [Suspect]
     Indication: BIPOLAR DISORDER
     Dosage: 200MG PER DAY
     Route: 048
     Dates: start: 20080305, end: 20080515
  2. MULTI-VITAMIN [Concomitant]
  3. CALCIUM [Concomitant]
  4. MAGNESIUM SULFATE [Concomitant]

REACTIONS (2)
  - DRUG ERUPTION [None]
  - RASH [None]
